FAERS Safety Report 5145975-0 (Version None)
Quarter: 2006Q4

REPORT INFORMATION
  Report Type: 
  Country: None (occurrence: None)
  Receive Date: 20061108
  Receipt Date: 20061027
  Transmission Date: 20070319
  Serious: Yes (Hospitalization)
  Sender: FDA-Public Use
  Company Number: US-BRISTOL-MYERS SQUIBB COMPANY-13558937

PATIENT
  Sex: Male

DRUGS (2)
  1. COUMADIN [Suspect]
  2. LASIX [Concomitant]

REACTIONS (1)
  - ANAPHYLACTIC SHOCK [None]
